FAERS Safety Report 12991874 (Version 1)
Quarter: 2016Q4

REPORT INFORMATION
  Report Type: Spontaneous
  Country: FR (occurrence: FR)
  Receive Date: 20161201
  Receipt Date: 20161201
  Transmission Date: 20170207
  Serious: Yes (Hospitalization)
  Sender: FDA-Public Use
  Company Number: FR-CANTON LABORATORIES, LLC-1060309

PATIENT
  Age: 58 Year
  Sex: Female

DRUGS (3)
  1. ANAPROX DS [Suspect]
     Active Substance: NAPROXEN SODIUM
     Indication: OSTEOARTHRITIS
     Route: 048
  2. LUTERAN (CHLORMADINONE) [Suspect]
     Active Substance: CHLORMADINONE ACETATE
     Route: 048
     Dates: start: 2014
  3. COAPROVEL (IRBESARTAN, HYDROCHLOROTHIAZIDE [Suspect]
     Active Substance: HYDROCHLOROTHIAZIDE\IRBESARTAN
     Route: 048

REACTIONS (4)
  - Interstitial lung disease [Recovered/Resolved]
  - Eosinophilic pneumonia [Recovered/Resolved]
  - Superinfection [None]
  - Pneumocystis jirovecii infection [None]

NARRATIVE: CASE EVENT DATE: 201610
